FAERS Safety Report 16175320 (Version 1)
Quarter: 2019Q2

REPORT INFORMATION
  Report Type: Spontaneous
  Country: US (occurrence: US)
  Receive Date: 20190409
  Receipt Date: 20190409
  Transmission Date: 20190711
  Serious: No
  Sender: FDA-Public Use
  Company Number: US-OPTINOSE US, INC-2019OPT000223

PATIENT
  Age: 52 Year
  Sex: Male

DRUGS (3)
  1. FLONASE                            /00908302/ [Concomitant]
     Active Substance: MOMETASONE FUROATE
     Indication: PRODUCT USED FOR UNKNOWN INDICATION
  2. XHANCE [Suspect]
     Active Substance: FLUTICASONE PROPIONATE
     Dosage: 186 MICROGRAM, QD (1 SPRAY EACH NOSTRIL QD)
     Route: 045
  3. XHANCE [Suspect]
     Active Substance: FLUTICASONE PROPIONATE
     Indication: PRODUCT USED FOR UNKNOWN INDICATION
     Dosage: 186 MICROGRAM, BID (1 SPRAY EACH NOSTRIL BID)
     Route: 045
     Dates: start: 201811

REACTIONS (1)
  - Sinus pain [Unknown]

NARRATIVE: CASE EVENT DATE: 201212
